FAERS Safety Report 11727365 (Version 2)
Quarter: 2016Q1

REPORT INFORMATION
  Report Type: Spontaneous
  Country: US (occurrence: US)
  Receive Date: 20151112
  Receipt Date: 20160126
  Transmission Date: 20160525
  Serious: No
  Sender: FDA-Public Use
  Company Number: US-PFIZER INC-2015370876

PATIENT
  Age: 34 Year
  Sex: Female
  Weight: 76 kg

DRUGS (10)
  1. LINZESS [Concomitant]
     Active Substance: LINACLOTIDE
     Dosage: UNK
  2. KEVEYIS [Suspect]
     Active Substance: DICHLORPHENAMIDE
     Dosage: UNK, 2X/DAY 8(1/4 IN THE MORNING, THEN 1/2 AT NIGHT))
     Dates: start: 20151025, end: 20151029
  3. KEVEYIS [Suspect]
     Active Substance: DICHLORPHENAMIDE
     Indication: PARALYSIS
     Dosage: 50 MG, 2X/DAY
     Route: 048
     Dates: start: 20151013, end: 20151015
  4. KEVEYIS [Suspect]
     Active Substance: DICHLORPHENAMIDE
     Dosage: 12.5 MG, 1X/DAY (1/4 TABLET ONCE DAILY)
     Dates: start: 20151016
  5. ESTRADIOL. [Concomitant]
     Active Substance: ESTRADIOL
     Dosage: UNK
     Dates: start: 2012
  6. KEVEYIS [Suspect]
     Active Substance: DICHLORPHENAMIDE
     Dosage: 50 MG, 2X/DAY
     Dates: start: 20151030
  7. XIFAXAN [Concomitant]
     Active Substance: RIFAXIMIN
     Dosage: UNK
  8. INSPRA [Suspect]
     Active Substance: EPLERENONE
     Dosage: UNK
     Dates: end: 20151012
  9. KEVEYIS [Suspect]
     Active Substance: DICHLORPHENAMIDE
     Dosage: 12.5 MG, 2X/DAY (1/4 TABLET TWICE DAILY)
  10. POTASSIUM [Concomitant]
     Active Substance: POTASSIUM
     Dosage: UNK

REACTIONS (4)
  - Neuropathy peripheral [Unknown]
  - Paraesthesia [Not Recovered/Not Resolved]
  - Hypoaesthesia [Recovered/Resolved]
  - Blood pressure abnormal [Unknown]
